FAERS Safety Report 24178809 (Version 2)
Quarter: 2024Q4

REPORT INFORMATION
  Report Type: Report from Study
  Country: TR (occurrence: TR)
  Receive Date: 20240806
  Receipt Date: 20241118
  Transmission Date: 20250115
  Serious: Yes (Death, Other)
  Sender: PFIZER
  Company Number: TR-PFIZER INC-202400228964

PATIENT
  Age: 70 Year
  Sex: Female

DRUGS (9)
  1. TIGECYCLINE [Suspect]
     Active Substance: TIGECYCLINE
     Indication: Meningitis bacterial
     Dosage: 2*5 MG 9 D
     Route: 037
  2. TIGECYCLINE [Suspect]
     Active Substance: TIGECYCLINE
     Indication: Acinetobacter bacteraemia
     Dosage: 2*50 MG 13 D
     Route: 042
  3. TIGECYCLINE [Suspect]
     Active Substance: TIGECYCLINE
     Dosage: 2*100 MG 1 D
     Route: 042
  4. FLUCONAZOLE [Suspect]
     Active Substance: FLUCONAZOLE
     Indication: Meningitis bacterial
     Dosage: 1*400 MG LOADING
  5. FLUCONAZOLE [Suspect]
     Active Substance: FLUCONAZOLE
     Indication: Acinetobacter bacteraemia
     Dosage: 1*200 MG MAINTENANCE
  6. POLYMYXIN B [Suspect]
     Active Substance: POLYMYXIN B
     Indication: Meningitis bacterial
     Dosage: 2*15.000 IU/KG 14 D
  7. POLYMYXIN B [Suspect]
     Active Substance: POLYMYXIN B
     Indication: Acinetobacter bacteraemia
  8. MICAFUNGIN [Suspect]
     Active Substance: MICAFUNGIN SODIUM
     Indication: Meningitis bacterial
     Dosage: 1*100 MG 3 D
  9. MICAFUNGIN [Suspect]
     Active Substance: MICAFUNGIN SODIUM
     Indication: Acinetobacter bacteraemia

REACTIONS (1)
  - Drug ineffective [Fatal]
